FAERS Safety Report 11008108 (Version 3)
Quarter: 2015Q2

REPORT INFORMATION
  Report Type: Spontaneous
  Country: US (occurrence: US)
  Receive Date: 20150410
  Receipt Date: 20150623
  Transmission Date: 20150821
  Serious: Yes (Death, Hospitalization)
  Sender: FDA-Public Use
  Company Number: US-DENDREON CORPORATION-2015PROUSA04392

PATIENT

DRUGS (2)
  1. PROVENGE [Suspect]
     Active Substance: SIPULEUCEL-T
     Indication: PROSTATE CANCER METASTATIC
     Dosage: 250 ML, SINGLE
     Route: 042
     Dates: start: 20150305, end: 20150305
  2. PROVENGE [Suspect]
     Active Substance: SIPULEUCEL-T
     Dosage: 250 ML, SINGLE
     Route: 042
     Dates: start: 20150319, end: 20150319

REACTIONS (3)
  - Altered state of consciousness [Not Recovered/Not Resolved]
  - Fatigue [Not Recovered/Not Resolved]
  - Failure to thrive [Fatal]

NARRATIVE: CASE EVENT DATE: 20150320
